FAERS Safety Report 21357193 (Version 1)
Quarter: 2022Q3

REPORT INFORMATION
  Report Type: Spontaneous
  Country: US (occurrence: US)
  Receive Date: 20220921
  Receipt Date: 20220921
  Transmission Date: 20221027
  Serious: Yes (Life-Threatening, Hospitalization)
  Sender: FDA-Public Use
  Company Number: US-SUN PHARMACEUTICAL INDUSTRIES LTD-2022R1-355234

PATIENT
  Age: 48 Year
  Sex: Male

DRUGS (1)
  1. PREDNISONE [Suspect]
     Active Substance: PREDNISONE
     Indication: Rash vesicular
     Dosage: 60 MILLIGRAM, DAILY
     Route: 048

REACTIONS (2)
  - Condition aggravated [Unknown]
  - Stevens-Johnson syndrome [Recovered/Resolved]
